FAERS Safety Report 23530113 (Version 3)
Quarter: 2024Q2

REPORT INFORMATION
  Report Type: Report from Study
  Country: DE (occurrence: DE)
  Receive Date: 20240216
  Receipt Date: 20240408
  Transmission Date: 20240715
  Serious: Yes (Other)
  Sender: FDA-Public Use
  Company Number: DE-JNJFOC-20240243810

PATIENT
  Age: 31 Year
  Sex: Female

DRUGS (3)
  1. SPRAVATO [Suspect]
     Active Substance: ESKETAMINE
     Indication: Product used for unknown indication
     Dosage: WEEK 1-4
     Dates: start: 20231106
  2. SPRAVATO [Suspect]
     Active Substance: ESKETAMINE
     Dosage: WEEK 5-8 RECOMMENDATION FOR OUTPATIENT CONTINUATION OF THERAPY
  3. SPRAVATO [Suspect]
     Active Substance: ESKETAMINE
     Dosage: FROM WEEK 9: IDENTICAL DOSAGE TWICE A MONTH AT 14-DAY INTERVALS

REACTIONS (2)
  - Respiratory disorder [Recovered/Resolved]
  - Dizziness [Recovered/Resolved]

NARRATIVE: CASE EVENT DATE: 20231106
